FAERS Safety Report 21928594 (Version 1)
Quarter: 2023Q1

REPORT INFORMATION
  Report Type: Spontaneous
  Country: US (occurrence: US)
  Receive Date: 20230130
  Receipt Date: 20230130
  Transmission Date: 20230417
  Serious: No
  Sender: FDA-Public Use
  Company Number: US-drreddys-SPO/USA/23/0159462

PATIENT
  Age: 74 Year
  Sex: Female

DRUGS (6)
  1. LENALIDOMIDE [Suspect]
     Active Substance: LENALIDOMIDE
     Indication: Plasma cell myeloma
     Dosage: NEVER FILLED
     Dates: start: 20221206
  2. VALGANCICLOVIR [Concomitant]
     Active Substance: VALGANCICLOVIR
     Indication: Product used for unknown indication
  3. ABILIFY TAB 30MG [Concomitant]
     Indication: Product used for unknown indication
  4. LAMICTAL TAB 100MG [Concomitant]
     Indication: Product used for unknown indication
  5. LISINOPRIL TAB 40MG [Concomitant]
     Indication: Product used for unknown indication
  6. PREVACID 24H CPD 15MG [Concomitant]
     Indication: Product used for unknown indication

REACTIONS (1)
  - Treatment noncompliance [Unknown]
